FAERS Safety Report 8265716-8 (Version None)
Quarter: 2012Q2

REPORT INFORMATION
  Report Type: 
  Country: None (occurrence: None)
  Receive Date: 20120404
  Receipt Date: 20120321
  Transmission Date: 20120825
  Serious: Yes (Other)
  Sender: FDA-Public Use
  Company Number: 2012-028156

PATIENT
  Age: 81 Year
  Sex: Female
  Weight: 50 kg

DRUGS (12)
  1. ALKA-SELTZER PLUS COLD FORMULA ORANGE ZEST (ACETYLSALICYLIC ACID + CHL [Suspect]
     Indication: NASOPHARYNGITIS
     Dosage: 2 DF, QD, ORAL
     Route: 048
     Dates: start: 20120301, end: 20120320
  2. RED YEAST RICE (OTHER CHOLESTEROL AND TRIGLYCERIDE REDUCERS) [Concomitant]
  3. CRANBERRY (VACCINIUM MACROCARPON) [Concomitant]
  4. ALKA-SELTZER PLUS COLD AND COUGH (DAY) (ACETYLSALICYLIC ACID + CHLORPH [Suspect]
     Dosage: ORAL
     Route: 048
     Dates: start: 20120317, end: 20120320
  5. ASPIRIN [Concomitant]
  6. VITAMIN D [Concomitant]
  7. LEVOTHYROXINE SODIUM [Concomitant]
  8. CENTRUM SILVER (CENTRUM SILVER) [Concomitant]
  9. FISH OIL (FISH OIL) [Concomitant]
  10. B COMPLEX WITH VITAMIN C (COMBEVIT C) [Concomitant]
  11. ALKA-SELTZER PLUS NIGHT COLD (ACETYLSALICYLIC ACID + DEXTROMETHORPHAN [Suspect]
     Indication: NASOPHARYNGITIS
     Dosage: 2 DF, QD, ORAL
     Route: 048
     Dates: start: 20120301, end: 20120320
  12. GARLIC (ALLIUM SATIVUM) [Concomitant]

REACTIONS (3)
  - ABDOMINAL DISCOMFORT [None]
  - HAEMATOCHEZIA [None]
  - COUGH [None]
